FAERS Safety Report 9350697 (Version 1)
Quarter: 2013Q2

REPORT INFORMATION
  Report Type: Spontaneous
  Country: FR (occurrence: FR)
  Receive Date: 20130617
  Receipt Date: 20130617
  Transmission Date: 20140414
  Serious: Yes (Hospitalization)
  Sender: FDA-Public Use
  Company Number: PHHY2013FR061076

PATIENT
  Age: 65 Year
  Sex: Male

DRUGS (10)
  1. RASILEZ HCT [Suspect]
     Dosage: 1 DF (300MG ALISK/ 25MG HYDR), QD
     Route: 048
     Dates: start: 2011, end: 20130224
  2. DIAMICRON [Suspect]
     Dosage: 40 MG, QD
     Route: 048
     Dates: start: 20130223, end: 20130224
  3. JOSACINE [Suspect]
     Dosage: 1000 MG, QD
     Route: 048
     Dates: start: 20130222, end: 20130224
  4. SOLUPRED [Suspect]
     Dosage: UNK UKN, UNK
     Route: 048
     Dates: start: 20130222, end: 20130224
  5. PLAVIX [Suspect]
     Dosage: 75 MG, QD
     Route: 048
     Dates: end: 20130224
  6. KARDEGIC [Concomitant]
     Dosage: 160 MG, UNK
     Route: 048
     Dates: start: 2010, end: 20130224
  7. PRAVADUAL [Concomitant]
     Dosage: 1 DF (81MG ACET/ 40MG PRAV )
     Route: 048
     Dates: start: 2010, end: 20130222
  8. AXELER [Concomitant]
     Dosage: 1 DF, UNK
     Route: 048
     Dates: end: 20130224
  9. BISOPROLOL [Concomitant]
     Dosage: 1 DF, UNK
     Route: 048
     Dates: end: 20130224
  10. VELMETIA [Concomitant]
     Dosage: UNK UKN, UNK
     Dates: end: 20130221

REACTIONS (3)
  - Haematoma [Recovered/Resolved]
  - Haemorrhage [Recovered/Resolved]
  - Thrombocytopenia [Recovered/Resolved]
